FAERS Safety Report 10333090 (Version 2)
Quarter: 2014Q3

REPORT INFORMATION
  Report Type: Spontaneous
  Country: VE (occurrence: VE)
  Receive Date: 20140722
  Receipt Date: 20140804
  Transmission Date: 20150326
  Serious: Yes (Hospitalization, Other)
  Sender: FDA-Public Use
  Company Number: PHHY2014VE089790

PATIENT
  Age: 7 Year
  Sex: Female
  Weight: 17.5 kg

DRUGS (21)
  1. LIORESAL [Suspect]
     Active Substance: BACLOFEN
     Indication: PERFORMANCE STATUS DECREASED
  2. TEGRETOL [Suspect]
     Active Substance: CARBAMAZEPINE
     Indication: DYSPHAGIA
     Dosage: 4 UKN, Q12H (04 CC)
     Route: 042
     Dates: start: 2012
  3. LIORESAL [Suspect]
     Active Substance: BACLOFEN
     Indication: DYSPHAGIA
     Dosage: 10 MG, DAILY
     Route: 048
     Dates: start: 201405
  4. RIVOTRIL [Concomitant]
     Active Substance: CLONAZEPAM
     Indication: DYSKINESIA
     Dosage: UNK UKN, Q12H
  5. RIVOTRIL [Concomitant]
     Active Substance: CLONAZEPAM
     Indication: PERFORMANCE STATUS DECREASED
  6. GABAPENTIN. [Concomitant]
     Active Substance: GABAPENTIN
     Indication: PERFORMANCE STATUS DECREASED
  7. MODERAN [Concomitant]
     Indication: DYSPHAGIA
     Dosage: UNK UKN, UNK
  8. ZOLPIDEX [Concomitant]
     Indication: DYSKINESIA
  9. TEGRETOL [Suspect]
     Active Substance: CARBAMAZEPINE
     Indication: DYSKINESIA
  10. RISPERIDONE. [Concomitant]
     Active Substance: RISPERIDONE
     Indication: DYSKINESIA
  11. TEGRETOL [Suspect]
     Active Substance: CARBAMAZEPINE
     Indication: PERFORMANCE STATUS DECREASED
  12. RIVOTRIL [Concomitant]
     Active Substance: CLONAZEPAM
     Indication: DYSPHAGIA
  13. ZOLPIDEX [Concomitant]
     Indication: PERFORMANCE STATUS DECREASED
  14. LIORESAL [Suspect]
     Active Substance: BACLOFEN
     Indication: DYSKINESIA
  15. MODERAN [Concomitant]
     Indication: DYSKINESIA
  16. GABAPENTIN. [Concomitant]
     Active Substance: GABAPENTIN
     Indication: DYSPHAGIA
     Dosage: 25 MG, Q12H
  17. MODERAN [Concomitant]
     Indication: PERFORMANCE STATUS DECREASED
  18. ZOLPIDEX [Concomitant]
     Indication: DYSPHAGIA
     Dosage: UNK UKN, UNK
  19. GABAPENTIN. [Concomitant]
     Active Substance: GABAPENTIN
     Indication: DYSKINESIA
  20. RISPERIDONE. [Concomitant]
     Active Substance: RISPERIDONE
     Indication: DYSPHAGIA
     Dosage: UNK UKN, UNK
  21. RISPERIDONE. [Concomitant]
     Active Substance: RISPERIDONE
     Indication: PERFORMANCE STATUS DECREASED

REACTIONS (2)
  - Disease progression [Not Recovered/Not Resolved]
  - Inborn error of metabolism [Not Recovered/Not Resolved]

NARRATIVE: CASE EVENT DATE: 201405
